FAERS Safety Report 11836611 (Version 2)
Quarter: 2016Q1

REPORT INFORMATION
  Report Type: Spontaneous
  Country: DE (occurrence: DE)
  Receive Date: 20151215
  Receipt Date: 20160225
  Transmission Date: 20160525
  Serious: Yes (Other)
  Sender: FDA-Public Use
  Company Number: DE-ABBVIE-15P-062-1520022-00

PATIENT
  Age: 36 Year
  Sex: Male
  Weight: 64 kg

DRUGS (10)
  1. ADVAGRAF [Interacting]
     Active Substance: TACROLIMUS
     Indication: RENAL TRANSPLANT
     Route: 048
  2. URBASON [Concomitant]
     Active Substance: METHYLPREDNISOLONE
     Indication: RENAL TRANSPLANT
     Route: 048
  3. RAMIPRIL. [Concomitant]
     Active Substance: RAMIPRIL
     Indication: PRODUCT USED FOR UNKNOWN INDICATION
     Route: 048
  4. KLACID [Suspect]
     Active Substance: CLARITHROMYCIN
     Indication: HELICOBACTER INFECTION
     Route: 048
     Dates: start: 20151127, end: 20151202
  5. PANTOPRAZOL [Concomitant]
     Active Substance: PANTOPRAZOLE SODIUM
     Dates: end: 20151202
  6. AMOXICILLIN W/CLAVULANIC ACID [Interacting]
     Active Substance: AMOXICILLIN\CLAVULANIC ACID
     Indication: HELICOBACTER INFECTION
     Route: 048
     Dates: start: 20151125, end: 20151202
  7. URBASON [Concomitant]
     Active Substance: METHYLPREDNISOLONE
  8. FUROSEMID [Concomitant]
     Active Substance: FUROSEMIDE
     Indication: ASCITES
     Route: 048
  9. PANTOPRAZOL [Concomitant]
     Active Substance: PANTOPRAZOLE SODIUM
     Indication: OESOPHAGITIS
     Route: 048
  10. QUANTALAN [Concomitant]
     Active Substance: CHOLESTYRAMINE
     Indication: PRODUCT USED FOR UNKNOWN INDICATION
     Dosage: 1-2/DAY

REACTIONS (3)
  - Nausea [Not Recovered/Not Resolved]
  - Immunosuppressant drug level increased [Not Recovered/Not Resolved]
  - Vomiting [Not Recovered/Not Resolved]

NARRATIVE: CASE EVENT DATE: 20151130
